FAERS Safety Report 18438080 (Version 6)
Quarter: 2022Q4

REPORT INFORMATION
  Report Type: Report from Study
  Country: None (occurrence: US)
  Receive Date: 20201029
  Receipt Date: 20221017
  Transmission Date: 20230113
  Serious: Yes (Hospitalization)
  Sender: FDA-Public Use
  Company Number: US-AKCEA THERAPEUTICS-2020IS001420

PATIENT
  Age: 65 Year
  Sex: Female

DRUGS (3)
  1. TEGSEDI [Suspect]
     Active Substance: INOTERSEN SODIUM
     Indication: Hereditary neuropathic amyloidosis
     Route: 058
     Dates: start: 20190321, end: 202210
  2. DEVICE [Suspect]
     Active Substance: DEVICE
  3. BENADRYL [Concomitant]
     Active Substance: DIPHENHYDRAMINE HYDROCHLORIDE

REACTIONS (33)
  - Nitrite urine present [Unknown]
  - Bacterial test positive [Unknown]
  - Platelet count decreased [Unknown]
  - Aspartate aminotransferase increased [Unknown]
  - Alanine aminotransferase increased [Unknown]
  - Urinary sediment present [Unknown]
  - Urine abnormality [Unknown]
  - Crystal urine present [Unknown]
  - Anaphylactic reaction [Unknown]
  - Dry throat [Unknown]
  - Lip swelling [Unknown]
  - Dysphagia [Unknown]
  - Swollen tongue [Unknown]
  - Mouth swelling [Unknown]
  - White blood cells urine positive [Unknown]
  - Urinary casts [Unknown]
  - Glucose urine present [Unknown]
  - Red blood cells urine positive [Unknown]
  - Urinary occult blood positive [Unknown]
  - Urine leukocyte esterase positive [Unknown]
  - Urine ketone body present [Unknown]
  - Protein urine present [Unknown]
  - COVID-19 [Unknown]
  - Pharyngeal swelling [Unknown]
  - Exposure to unspecified agent [Unknown]
  - Adverse food reaction [Unknown]
  - Taste disorder [Unknown]
  - Face oedema [Unknown]
  - Food allergy [Unknown]
  - Drug hypersensitivity [Unknown]
  - Paraesthesia oral [Unknown]
  - Paraesthesia [Unknown]
  - Intentional product misuse [Unknown]

NARRATIVE: CASE EVENT DATE: 20200101
